FAERS Safety Report 9176978 (Version 1)
Quarter: 2013Q1

REPORT INFORMATION
  Report Type: Report from Study
  Country: US (occurrence: US)
  Receive Date: 20130321
  Receipt Date: 20130321
  Transmission Date: 20140127
  Serious: No
  Sender: FDA-Public Use
  Company Number: US-VERTEX PHARMACEUTICALS INC.-2013-003830

PATIENT
  Sex: Female

DRUGS (8)
  1. VX-950 (TELAPREVIR) [Suspect]
     Indication: HEPATITIS C
     Dosage: 750 MG, TID
     Route: 048
  2. PEGASYS [Suspect]
     Indication: HEPATITIS C
     Dosage: 180 ?G, UNK
     Route: 058
  3. RIBAVIRIN [Suspect]
     Indication: HEPATITIS C
     Dosage: 200 MG, UNK
     Route: 048
  4. ZOLOFT [Concomitant]
     Dosage: 25 MG, UNK
     Route: 048
  5. LISINOPRIL [Concomitant]
     Dosage: 10 MG, UNK
     Route: 048
  6. NOVOLOG [Concomitant]
  7. LEVEMIR [Concomitant]
  8. HYDROCHLOROTH [Concomitant]
     Dosage: 12.5 MG, UNK
     Route: 048

REACTIONS (4)
  - Abdominal pain upper [Unknown]
  - Blood potassium decreased [Unknown]
  - Anaemia [Unknown]
  - Diarrhoea [Unknown]
